FAERS Safety Report 26030621 (Version 1)
Quarter: 2025Q4

REPORT INFORMATION
  Report Type: Spontaneous
  Country: GB (occurrence: GB)
  Receive Date: 20251112
  Receipt Date: 20251112
  Transmission Date: 20260119
  Serious: Yes (Other)
  Sender: TEVA
  Company Number: GB-MHRA-TPP45470346C11279264YC1762183114335

PATIENT
  Age: 85 Year
  Sex: Female
  Weight: 82 kg

DRUGS (21)
  1. TRIMETHOPRIM [Suspect]
     Active Substance: TRIMETHOPRIM
     Indication: Urinary tract infection
     Route: 065
     Dates: start: 20251013
  2. OMEPRAZOLE [Concomitant]
     Active Substance: OMEPRAZOLE
     Indication: Ill-defined disorder
     Dosage: EACH MORNING
     Dates: start: 20250630
  3. FOLIC ACID [Concomitant]
     Active Substance: FOLIC ACID
     Indication: Ill-defined disorder
     Dosage: EACH DAY
     Dates: start: 20250630
  4. PRUCALOPRIDE [Concomitant]
     Active Substance: PRUCALOPRIDE
     Indication: Ill-defined disorder
     Dosage: EACH DAY
     Dates: start: 20250630
  5. NORTRIPTYLINE [Concomitant]
     Active Substance: NORTRIPTYLINE
     Indication: Ill-defined disorder
     Dosage: AT NIGHT
     Dates: start: 20250630
  6. MIRTAZAPINE [Concomitant]
     Active Substance: MIRTAZAPINE
     Indication: Ill-defined disorder
     Dosage: AT NIGHT
     Dates: start: 20250630
  7. POLYETHYLENE GLYCOL 3350\POTASSIUM CHLORIDE\SODIUM BICARBONATE\SODIUM [Concomitant]
     Active Substance: POLYETHYLENE GLYCOL 3350\POTASSIUM CHLORIDE\SODIUM BICARBONATE\SODIUM CHLORIDE
     Indication: Ill-defined disorder
     Dosage: TIME INTERVAL: AS NECESSARY: TAKE ONE-THREE SACHETS DAILY, ADJU...
     Dates: start: 20250408
  8. LOSARTAN [Concomitant]
     Active Substance: LOSARTAN
     Indication: Ill-defined disorder
     Dosage: IN THE EVENING
     Dates: start: 20250630
  9. CALCIUM CARBONATE\CHOLECALCIFEROL [Concomitant]
     Active Substance: CALCIUM CARBONATE\CHOLECALCIFEROL
     Indication: Ill-defined disorder
     Dates: start: 20250630
  10. DOCUSATE SODIUM [Concomitant]
     Active Substance: DOCUSATE SODIUM
     Indication: Ill-defined disorder
     Dosage: TIME INTERVAL: 0.33333333 DAYS
     Dates: start: 20250630
  11. HYDROCORTISONE [Concomitant]
     Active Substance: HYDROCORTISONE
     Indication: Ill-defined disorder
     Dosage: MILD POTENCY STEROID - APPLY TO THE AFECT...
     Dates: start: 20251015, end: 20251025
  12. BISOPROLOL [Concomitant]
     Active Substance: BISOPROLOL
     Indication: Ill-defined disorder
     Dosage: EVERY DAY
     Dates: start: 20250630
  13. ATORVASTATIN [Concomitant]
     Active Substance: ATORVASTATIN
     Indication: Ill-defined disorder
     Dosage: AT NIGHT
     Dates: start: 20250630
  14. SENNA [Concomitant]
     Active Substance: SENNOSIDES
     Indication: Ill-defined disorder
     Dosage: AT NIGHT
     Dates: start: 20250630
  15. FUROSEMIDE [Concomitant]
     Active Substance: FUROSEMIDE
     Indication: Ill-defined disorder
     Dosage: EACH MORNING
     Dates: start: 20250630
  16. PHOSPHATES [Concomitant]
     Indication: Ill-defined disorder
     Dosage: TIME INTERVAL: AS NECESSARY: INSERT
     Dates: start: 20250408
  17. ACETAMINOPHEN [Concomitant]
     Active Substance: ACETAMINOPHEN
     Indication: Ill-defined disorder
     Dosage: TIME INTERVAL: AS NECESSARY: UP TO FOUR TIMES A DAY
     Dates: start: 20250702
  18. LORAZEPAM [Concomitant]
     Active Substance: LORAZEPAM
     Indication: Ill-defined disorder
     Dosage: ONE IN THE MORNING AND HALF A AT 10PM (G...
     Dates: start: 20250630
  19. IBUPROFEN [Concomitant]
     Active Substance: IBUPROFEN
     Indication: Ill-defined disorder
     Dosage: TIME INTERVAL: 0.33333333 DAYS: APPLY. REVIEW USE AFTER 14 DAYS
     Dates: start: 20251031
  20. CETIRIZINE [Concomitant]
     Active Substance: CETIRIZINE HYDROCHLORIDE
     Indication: Ill-defined disorder
     Dates: start: 20251015
  21. PROLIA [Concomitant]
     Active Substance: DENOSUMAB
     Indication: Ill-defined disorder
     Dosage: 6 MONTHLY DONOSUMAB FOR BONES. CHECK...
     Dates: start: 20250903

REACTIONS (2)
  - Angioedema [Recovered/Resolved]
  - Urticaria [Recovered/Resolved]

NARRATIVE: CASE EVENT DATE: 20251016
